FAERS Safety Report 10163769 (Version 3)
Quarter: 2014Q3

REPORT INFORMATION
  Report Type: Report from Study
  Country: DE (occurrence: NL)
  Receive Date: 20140509
  Receipt Date: 20140721
  Transmission Date: 20150326
  Serious: Yes (Death, Hospitalization, Other)
  Sender: FDA-Public Use
  Company Number: DE-ACTELION-A-US2009-98271

PATIENT
  Age: 58 Year
  Sex: Female

DRUGS (7)
  1. TRACLEER [Concomitant]
     Active Substance: BOSENTAN\BOSENTAN MONOHYDRATE
     Dosage: UNK
  2. REVATIO [Concomitant]
     Active Substance: SILDENAFIL CITRATE
  3. FUROSEMIDE. [Concomitant]
     Active Substance: FUROSEMIDE
  4. OXYGEN. [Concomitant]
     Active Substance: OXYGEN
  5. SINTROM [Concomitant]
     Active Substance: ACENOCOUMAROL
  6. RENITEC [Concomitant]
     Active Substance: ENALAPRIL MALEATE
  7. VENTAVIS [Suspect]
     Active Substance: ILOPROST
     Indication: PRODUCT USED FOR UNKNOWN INDICATION
     Dosage: UNK
     Route: 055
     Dates: start: 20090319, end: 20100723

REACTIONS (25)
  - Pulmonary arterial hypertension [Fatal]
  - General physical health deterioration [Fatal]
  - Blood urea increased [Unknown]
  - Deafness [Unknown]
  - Gout [Unknown]
  - Decreased appetite [Unknown]
  - Oedema [Unknown]
  - Drug ineffective [Unknown]
  - Mental impairment [Unknown]
  - Pulmonary congestion [Unknown]
  - Hospitalisation [Unknown]
  - Pruritus [Unknown]
  - Nasopharyngitis [Unknown]
  - Fall [Unknown]
  - International normalised ratio increased [Unknown]
  - Pneumonia [Unknown]
  - Cough [Unknown]
  - Hypotension [Unknown]
  - Epistaxis [Unknown]
  - Renal impairment [Unknown]
  - Muscle rupture [Unknown]
  - Blood potassium decreased [Unknown]
  - Malaise [Unknown]
  - Rash [Unknown]
  - Muscle spasms [Unknown]

NARRATIVE: CASE EVENT DATE: 20090401
